FAERS Safety Report 24133914 (Version 1)
Quarter: 2024Q3

REPORT INFORMATION
  Report Type: Spontaneous
  Country: FR (occurrence: FR)
  Receive Date: 20240724
  Receipt Date: 20240724
  Transmission Date: 20241017
  Serious: Yes (Hospitalization, Other)
  Sender: FRESENIUS KABI
  Company Number: None

PATIENT
  Age: 45 Year
  Sex: Female

DRUGS (2)
  1. TYENNE [Suspect]
     Active Substance: TOCILIZUMAB-AAZG
     Indication: Product used for unknown indication
     Dosage: START AND END TIME: 10:45 AM TO 11:45 AM?ROUTE: INTRAVENOUS (NOT OTHERWISE SPECIFIED)
     Dates: start: 20240528
  2. SODIUM CHLORIDE [Suspect]
     Active Substance: SODIUM CHLORIDE
     Indication: Product used for unknown indication
     Dosage: ROUTE: INTRAVENOUS (NOT OTHERWISE SPECIFIED)
     Dates: start: 20240528

REACTIONS (5)
  - Burning sensation [Recovered/Resolved]
  - Pruritus [Recovered/Resolved]
  - Agitation [Unknown]
  - Erythema [Recovered/Resolved]
  - Rash [Recovered/Resolved]

NARRATIVE: CASE EVENT DATE: 20240528
